FAERS Safety Report 23220546 (Version 1)
Quarter: 2023Q4

REPORT INFORMATION
  Report Type: Spontaneous
  Country: FR (occurrence: FR)
  Receive Date: 20231123
  Receipt Date: 20231123
  Transmission Date: 20240110
  Serious: Yes (Hospitalization, Other)
  Sender: FDA-Public Use
  Company Number: FR-AFSSAPS-TS2023001405

PATIENT
  Age: 62 Year
  Sex: Female

DRUGS (7)
  1. DROPERIDOL [Suspect]
     Active Substance: DROPERIDOL
     Indication: Prophylaxis
     Dosage: 0.63 MILLIGRAM
     Route: 042
     Dates: start: 20231030, end: 20231030
  2. ACETAMINOPHEN [Suspect]
     Active Substance: ACETAMINOPHEN
     Indication: Product used for unknown indication
     Dosage: 1 GRAM
     Route: 048
     Dates: start: 20231030, end: 20231030
  3. CEFAZOLIN SODIUM [Suspect]
     Active Substance: CEFAZOLIN SODIUM
     Indication: Prophylaxis
     Dosage: 2 GRAM
     Route: 042
     Dates: start: 20231030, end: 20231030
  4. DEXAMETHASONE [Suspect]
     Active Substance: DEXAMETHASONE
     Indication: Prophylaxis
     Dosage: 8 MILLIGRAM
     Route: 042
     Dates: start: 20231030, end: 20231030
  5. PROPOFOL [Suspect]
     Active Substance: PROPOFOL
     Indication: Anaesthesia
     Dosage: 10 MILLIGRAM
     Route: 042
     Dates: start: 20231030, end: 20231030
  6. PHLOROGLUCINOL [Suspect]
     Active Substance: PHLOROGLUCINOL
     Indication: Pain prophylaxis
     Dosage: 80 MILLIGRAM
     Route: 048
  7. ULTIVA [Suspect]
     Active Substance: REMIFENTANIL HYDROCHLORIDE
     Indication: Anaesthesia
     Dosage: 167 MICROGRAM
     Route: 042
     Dates: start: 20231030, end: 20231030

REACTIONS (3)
  - Anaphylactic reaction [Recovered/Resolved]
  - Rash [Recovered/Resolved]
  - Tachycardia [Recovered/Resolved]

NARRATIVE: CASE EVENT DATE: 20231030
